FAERS Safety Report 6841107-9 (Version None)
Quarter: 2010Q3

REPORT INFORMATION
  Report Type: 
  Country: None (occurrence: None)
  Receive Date: 20100714
  Receipt Date: 20070627
  Transmission Date: 20110219
  Serious: Yes (Other)
  Sender: FDA-Public Use
  Company Number: US-PFIZER INC-2007054059

PATIENT
  Sex: Male
  Weight: 120 kg

DRUGS (5)
  1. CHANTIX [Suspect]
     Indication: EX-TOBACCO USER
     Dates: start: 20070618, end: 20070627
  2. PROSCAR [Concomitant]
  3. TAMSULOSIN HYDROCHLORIDE [Concomitant]
  4. ZOCOR [Concomitant]
  5. LISINOPRIL [Concomitant]

REACTIONS (1)
  - ANAPHYLACTIC REACTION [None]
